FAERS Safety Report 5691508-X (Version None)
Quarter: 2008Q2

REPORT INFORMATION
  Report Type: 
  Country: None (occurrence: None)
  Receive Date: 20080401
  Receipt Date: 20080319
  Transmission Date: 20081010
  Serious: Yes (Hospitalization)
  Sender: FDA-Public Use
  Company Number: APP200800202

PATIENT
  Age: 50 Year
  Sex: Male
  Weight: 107.5 kg

DRUGS (3)
  1. HEPARIN SODIUM INJECTION [Suspect]
     Indication: HAEMODIALYSIS
     Dosage: 2000 USP UNITS, INTRAVENOUS BOLUS;1000 USP UNTIS, PER HOUR, INTRAVENOUS
     Route: 040
     Dates: start: 20080205, end: 20080205
  2. HEPARIN SODIUM INJECTION [Suspect]
     Indication: HAEMODIALYSIS
     Dosage: 2000 USP UNITS, INTRAVENOUS BOLUS;1000 USP UNTIS, PER HOUR, INTRAVENOUS
     Route: 040
     Dates: start: 20080205
  3. CAHP-210 CELLULOSE DIACETATE DIALYZER [Suspect]
     Indication: DIALYSIS

REACTIONS (11)
  - BLOOD BICARBONATE DECREASED [None]
  - BLOOD IMMUNOGLOBULIN E INCREASED [None]
  - BLOOD LACTATE DEHYDROGENASE INCREASED [None]
  - CHEST DISCOMFORT [None]
  - CONDITION AGGRAVATED [None]
  - DYSPNOEA [None]
  - ERYTHEMA [None]
  - OXYGEN SATURATION DECREASED [None]
  - PETECHIAE [None]
  - PRURITUS [None]
  - URTICARIA [None]
